FAERS Safety Report 9799785 (Version 1)
Quarter: 2014Q1

REPORT INFORMATION
  Report Type: Spontaneous
  Country: US (occurrence: US)
  Receive Date: 20140106
  Receipt Date: 20140106
  Transmission Date: 20141002
  Serious: Yes (Death, Other)
  Sender: FDA-Public Use
  Company Number: US-UCBSA-107728

PATIENT
  Age: 45 Year
  Sex: Female

DRUGS (6)
  1. ALPRAZOLAM [Suspect]
     Dosage: INGESTION
     Route: 048
  2. HYDROCODONE [Suspect]
     Dosage: INGESTION
     Route: 048
  3. DIPHENHYDRAMINE [Suspect]
     Dosage: INGESTION
     Route: 048
  4. BUPROPION [Suspect]
     Dosage: INGESTION
     Route: 048
  5. PAROXETINE [Suspect]
     Dosage: INGESTION
  6. PSEUDOEPHEDRINE [Suspect]
     Dosage: INGESTION
     Route: 048

REACTIONS (1)
  - Completed suicide [Fatal]
